FAERS Safety Report 14884348 (Version 1)
Quarter: 2018Q2

REPORT INFORMATION
  Report Type: Spontaneous
  Country: IL (occurrence: IL)
  Receive Date: 20180511
  Receipt Date: 20180511
  Transmission Date: 20180711
  Serious: Yes (Other)
  Sender: FDA-Public Use
  Company Number: IL-TEVA-2018-IL-889808

PATIENT
  Age: 1 Year
  Sex: Male

DRUGS (1)
  1. MOXYPEN ? FORTE 250 MG POWDER FOR SUSPENSION [Suspect]
     Active Substance: AMOXICILLIN
     Dates: start: 20180202

REACTIONS (3)
  - Pruritus [Unknown]
  - Face oedema [Unknown]
  - Cough [Unknown]
